FAERS Safety Report 10735981 (Version 1)
Quarter: 2015Q1

REPORT INFORMATION
  Report Type: Spontaneous
  Country: US (occurrence: US)
  Receive Date: 20150126
  Receipt Date: 20150126
  Transmission Date: 20150721
  Serious: No
  Sender: FDA-Public Use
  Company Number: US-BIOGENIDEC-2015BI007934

PATIENT
  Age: 65 Year
  Sex: Male

DRUGS (8)
  1. AMPYRA [Concomitant]
     Active Substance: DALFAMPRIDINE
     Indication: MULTIPLE SCLEROSIS
     Route: 048
  2. PROVIGIL [Concomitant]
     Active Substance: MODAFINIL
  3. TECFIDERA [Suspect]
     Active Substance: DIMETHYL FUMARATE
     Indication: PRODUCT USED FOR UNKNOWN INDICATION
  4. GABAPENTIN. [Concomitant]
     Active Substance: GABAPENTIN
  5. NEXIUM [Concomitant]
     Active Substance: ESOMEPRAZOLE MAGNESIUM
  6. ADVIL [Concomitant]
     Active Substance: IBUPROFEN
  7. LISINOPRIL. [Concomitant]
     Active Substance: LISINOPRIL
  8. TYLENOL [Concomitant]
     Active Substance: ACETAMINOPHEN

REACTIONS (5)
  - Malaise [Unknown]
  - Vomiting [Unknown]
  - Nausea [Unknown]
  - Affective disorder [Unknown]
  - Asthenia [Unknown]
